FAERS Safety Report 7211717-8 (Version None)
Quarter: 2011Q1

REPORT INFORMATION
  Report Type: 
  Country: None (occurrence: None)
  Receive Date: 20110105
  Receipt Date: 20101229
  Transmission Date: 20110831
  Serious: Yes (Other)
  Sender: FDA-Public Use
  Company Number: US-PFIZER INC-2010177823

PATIENT
  Sex: Female
  Weight: 108 kg

DRUGS (1)
  1. LIPITOR [Suspect]
     Indication: BLOOD CHOLESTEROL INCREASED
     Dosage: 40 G, 1X/DAY
     Dates: start: 20040101, end: 20100715

REACTIONS (16)
  - CEREBROVASCULAR ACCIDENT [None]
  - HYPERTENSION [None]
  - VOMITING [None]
  - HEPATOMEGALY [None]
  - RENAL DISORDER [None]
  - STOMACH SCAN ABNORMAL [None]
  - GALLBLADDER DISORDER [None]
  - CARDIAC OPERATION [None]
  - HEPATIC NEOPLASM [None]
  - ARRHYTHMIA [None]
  - LIVER DISORDER [None]
  - NAUSEA [None]
  - CARDIAC DISORDER [None]
  - OVERWEIGHT [None]
  - HEPATIC HAEMATOMA [None]
  - DYSPNOEA [None]
